FAERS Safety Report 9377536 (Version 1)
Quarter: 2013Q3

REPORT INFORMATION
  Report Type: Report from Study
  Country: JP (occurrence: JP)
  Receive Date: 20130701
  Receipt Date: 20130701
  Transmission Date: 20140515
  Serious: Yes (Hospitalization, Other)
  Sender: FDA-Public Use
  Company Number: JP-ACTELION-A-CH2013-80254

PATIENT
  Age: 3 Week
  Sex: Male
  Weight: .9 kg

DRUGS (18)
  1. TRACLEER [Suspect]
     Indication: PULMONARY HYPERTENSION
     Dosage: 1.25 MG, BID
     Route: 048
     Dates: start: 20101224, end: 20110210
  2. TRACLEER [Suspect]
     Dosage: 2.19 MG, BID
     Route: 048
     Dates: start: 20110211, end: 20110220
  3. TRACLEER [Suspect]
     Dosage: 2.5 MG, BID
     Route: 048
     Dates: start: 20110221, end: 20110525
  4. TRACLEER [Suspect]
     Dosage: 3.75 MG, BID
     Route: 048
     Dates: start: 20110526, end: 20110605
  5. TRACLEER [Suspect]
     Dosage: 4.38 MG, BID
     Route: 048
     Dates: start: 20110606, end: 20120703
  6. TRACLEER [Suspect]
     Dosage: 3.13 MG, BID
     Route: 048
     Dates: start: 20120704, end: 20120712
  7. TRACLEER [Suspect]
     Dosage: 2.13 MG, BID
     Route: 048
     Dates: start: 20120713, end: 20120729
  8. TRACLEER [Suspect]
     Dosage: 1.56 MG, BID
     Route: 048
     Dates: start: 20120730
  9. CEFTAZIDIME [Suspect]
     Indication: RESPIRATORY TRACT INFECTION
     Dosage: 300 MG, QD
     Route: 042
     Dates: start: 20110426, end: 20110502
  10. FOSFOMYCIN SODIUM [Suspect]
     Indication: RESPIRATORY TRACT INFECTION
     Dosage: 300 MG, QD
     Route: 042
     Dates: start: 20110426, end: 20110502
  11. AMIKACIN SULFATE [Suspect]
     Indication: RESPIRATORY TRACT INFECTION
     Dosage: 30 MG, QD
     Route: 042
     Dates: start: 20110426, end: 20110502
  12. FUROSEMIDE [Suspect]
     Indication: CARDIAC FAILURE
     Dosage: 0.3 MG, QD
     Route: 042
     Dates: start: 20101228, end: 20110510
  13. MILRINONE [Concomitant]
  14. DOBUTAMINE HYDROCHLORIDE [Concomitant]
  15. HYDROCORTISONE SODIUM SUCCINATE [Concomitant]
  16. PHENOBARBITAL [Concomitant]
  17. TOCOPHEROL ACETATE [Concomitant]
  18. OXYGEN [Concomitant]

REACTIONS (10)
  - Respiratory tract infection [Recovered/Resolved]
  - Platelet count increased [Not Recovered/Not Resolved]
  - Anaemia [Not Recovered/Not Resolved]
  - Liver function test abnormal [Recovered/Resolved]
  - White blood cell count increased [Not Recovered/Not Resolved]
  - N-terminal prohormone brain natriuretic peptide increased [Recovered/Resolved]
  - Alanine aminotransferase increased [Recovered/Resolved]
  - Gamma-glutamyltransferase increased [Recovered/Resolved]
  - Blood alkaline phosphatase increased [Recovered/Resolved]
  - Aspartate aminotransferase increased [Recovered/Resolved]
